FAERS Safety Report 4461680-8 (Version None)
Quarter: 2004Q3

REPORT INFORMATION
  Report Type: 
  Country: None (occurrence: None)
  Receive Date: 20040924
  Receipt Date: 20040924
  Transmission Date: 20050211
  Serious: Yes (Other)
  Sender: FDA-Public Use
  Company Number: None

PATIENT
  Age: 60 Year
  Sex: Male
  Weight: 53.0709 kg

DRUGS (11)
  1. DEXAMETHASONE [Suspect]
     Dosage: 10 MG DAILY IV
     Route: 042
     Dates: start: 20040317, end: 20040322
  2. ATENOLOL [Concomitant]
  3. NEURONTIN [Concomitant]
  4. HYDROCHLOROTHIAZIDE [Concomitant]
  5. CYCLOBENZAPRIME [Concomitant]
  6. KCL TAB [Concomitant]
  7. BACTRIM DS [Concomitant]
  8. PLACIX [Concomitant]
  9. ASPIRIN [Concomitant]
  10. NORVASC [Concomitant]
  11. LISINOPRIL [Concomitant]

REACTIONS (1)
  - WHITE BLOOD CELL COUNT INCREASED [None]
